FAERS Safety Report 9593220 (Version 1)
Quarter: 2013Q4

REPORT INFORMATION
  Report Type: Spontaneous
  Country: US (occurrence: None)
  Receive Date: 20131002
  Receipt Date: 20131002
  Transmission Date: 20140711
  Serious: Yes (Other)
  Sender: FDA-Public Use
  Company Number: 2013SA094315

PATIENT
  Sex: 0

DRUGS (1)
  1. ICY HOT NO MESS [Suspect]
     Indication: PAIN IN EXTREMITY
     Route: 048
     Dates: start: 20130914

REACTIONS (2)
  - Gait disturbance [None]
  - Inflammation [None]
